FAERS Safety Report 21184694 (Version 3)
Quarter: 2023Q4

REPORT INFORMATION
  Report Type: Spontaneous
  Country: DE (occurrence: DE)
  Receive Date: 20220808
  Receipt Date: 20231101
  Transmission Date: 20240110
  Serious: Yes (Hospitalization, Other)
  Sender: FDA-Public Use
  Company Number: DE-SANOFI-01190079

PATIENT
  Age: 38 Year
  Sex: Female
  Weight: 80 kg

DRUGS (10)
  1. AUBAGIO [Suspect]
     Active Substance: TERIFLUNOMIDE
     Indication: Multiple sclerosis
     Dosage: 14 MG, QD
     Route: 048
     Dates: start: 202109, end: 20220202
  2. CLOPIDOGREL [Concomitant]
     Active Substance: CLOPIDOGREL BISULFATE
     Dosage: UNK
  3. AMLODIPINE [Concomitant]
     Active Substance: AMLODIPINE BESYLATE
     Dosage: 1-0-1
  4. METOPROLOL [Concomitant]
     Active Substance: METOPROLOL
     Dosage: 1/2-0-1/2
  5. LEVOTHYROXINE [Concomitant]
     Active Substance: LEVOTHYROXINE
     Dosage: 1-0-0
  6. OMEPRAZOLE [Concomitant]
     Active Substance: OMEPRAZOLE
     Dosage: 40 MG, 1-0-0
  7. ASPIRIN [Concomitant]
     Active Substance: ASPIRIN
     Dosage: 1-0-0
  8. ATORVASTATIN [Concomitant]
     Active Substance: ATORVASTATIN
     Dosage: 0-0-1
  9. PREGABALIN [Concomitant]
     Active Substance: PREGABALIN
     Dosage: 1-0-1
  10. CORTISONE [Concomitant]
     Active Substance: CORTISONE

REACTIONS (15)
  - Gingival atrophy [Unknown]
  - Cyanosis [Unknown]
  - Condition aggravated [Unknown]
  - Tobacco abuse [Unknown]
  - Migraine [Unknown]
  - Goitre [Unknown]
  - Tonsillitis [Unknown]
  - Hypoaesthesia [Unknown]
  - Hypertension [Unknown]
  - Optic neuritis [Unknown]
  - Tooth loss [Unknown]
  - Tooth injury [Unknown]
  - Gingival recession [Recovered/Resolved]
  - Toothache [Unknown]
  - JC polyomavirus test positive [Unknown]

NARRATIVE: CASE EVENT DATE: 20210901
